FAERS Safety Report 5005638-9 (Version None)
Quarter: 2006Q1

REPORT INFORMATION
  Report Type: 
  Country: None (occurrence: None)
  Receive Date: 20060317
  Receipt Date: 20060110
  Transmission Date: 20060701
  Serious: Yes (Hospitalization)
  Sender: FDA-Public Use
  Company Number: US-JNJFOC-20060104003

PATIENT
  Age: 44 Year
  Sex: Female
  Weight: 63.9572 kg

DRUGS (1)
  1. ORTHO EVRA [Suspect]
     Indication: ENDOMETRIOSIS
     Dosage: 1 DOSE(S), 3 IN 4 WEEK
     Dates: start: 20040827, end: 20040914

REACTIONS (3)
  - FACIAL PARESIS [None]
  - HYPOAESTHESIA FACIAL [None]
  - PULMONARY EMBOLISM [None]
